FAERS Safety Report 5235078-9 (Version None)
Quarter: 2007Q1

REPORT INFORMATION
  Report Type: 
  Country: None (occurrence: None)
  Receive Date: 20070207
  Receipt Date: 20070125
  Transmission Date: 20070707
  Serious: Yes (Death, Hospitalization)
  Sender: FDA-Public Use
  Company Number: MIN-00071

PATIENT
  Age: 59 Year
  Sex: Female
  Weight: 44 kg

DRUGS (8)
  1. MINOCYCLINE, 100-MG CAPSULES, GENPHAM [Suspect]
     Indication: BREAST CANCER
     Dosage: 100 MG, TWICE DAILY, ORAL
     Route: 048
     Dates: start: 20021029, end: 20021112
  2. MINOCYCLINE, 100-MG CAPSULES, GENPHAM [Suspect]
     Indication: NEOPLASM MALIGNANT
     Dosage: 100 MG, TWICE DAILY, ORAL
     Route: 048
     Dates: start: 20021029, end: 20021112
  3. CYCLOPHOSPHAMIDE [Concomitant]
  4. VINBLASTINE SULFATE [Concomitant]
  5. ROFECOXIB [Concomitant]
  6. PROCHLORPERAZINE [Concomitant]
  7. BONEFOS (CLODRONAE) [Concomitant]
  8. DILANTIN [Concomitant]

REACTIONS (8)
  - DEHYDRATION [None]
  - DRUG HYPERSENSITIVITY [None]
  - HAEMODIALYSIS [None]
  - HEPATITIS [None]
  - MYOSITIS [None]
  - NEPHRITIS INTERSTITIAL [None]
  - RENAL FAILURE ACUTE [None]
  - RENAL FAILURE CHRONIC [None]
